FAERS Safety Report 9317838 (Version 1)
Quarter: 2013Q2

REPORT INFORMATION
  Report Type: Spontaneous
  Country: US (occurrence: US)
  Receive Date: 20130530
  Receipt Date: 20130530
  Transmission Date: 20140414
  Serious: No
  Sender: FDA-Public Use
  Company Number: US-NOVEN-12US005394

PATIENT
  Age: 8 Year
  Sex: Male
  Weight: 30.84 kg

DRUGS (2)
  1. DAYTRANA [Suspect]
     Indication: ATTENTION DEFICIT/HYPERACTIVITY DISORDER
     Dosage: 10 MG, QD
     Route: 062
     Dates: start: 2012
  2. DAYTRANA [Suspect]
     Dosage: 10 MG, QD
     Route: 062
     Dates: start: 2012, end: 2012

REACTIONS (5)
  - Abnormal behaviour [Not Recovered/Not Resolved]
  - Sluggishness [Not Recovered/Not Resolved]
  - Decreased appetite [Not Recovered/Not Resolved]
  - Insomnia [None]
  - Product quality issue [Not Recovered/Not Resolved]
